FAERS Safety Report 10262338 (Version 1)
Quarter: 2014Q2

REPORT INFORMATION
  Report Type: Spontaneous
  Country: US (occurrence: US)
  Receive Date: 20140626
  Receipt Date: 20140626
  Transmission Date: 20141212
  Serious: No
  Sender: FDA-Public Use
  Company Number: US-B.I. PHARMACEUTICALS,INC./RIDGEFIELD-2014-BI-27908BP

PATIENT
  Age: 55 Year
  Sex: Female

DRUGS (2)
  1. ZANTAC COOL MINT (TABLETS) [Suspect]
     Indication: GASTROOESOPHAGEAL REFLUX DISEASE
     Dosage: 300 MG
     Route: 048
     Dates: start: 20140616
  2. ZANTAC 150 (RANITIDINE HYDROCHLORIDE) [Suspect]
     Indication: GASTROOESOPHAGEAL REFLUX DISEASE
     Route: 048
     Dates: start: 2006

REACTIONS (5)
  - Dyspepsia [Recovered/Resolved]
  - Abdominal pain [Not Recovered/Not Resolved]
  - Intentional product misuse [Unknown]
  - Overdose [Unknown]
  - Off label use [Unknown]
